FAERS Safety Report 7804069-3 (Version None)
Quarter: 2011Q4

REPORT INFORMATION
  Report Type: 
  Country: None (occurrence: None)
  Receive Date: 20111010
  Receipt Date: 20110930
  Transmission Date: 20120403
  Serious: Yes (Other)
  Sender: FDA-Public Use
  Company Number: US-JNJFOC-20111002393

PATIENT
  Sex: Female

DRUGS (4)
  1. LITHIUM [Suspect]
     Indication: SCHIZOPHRENIA, PARANOID TYPE
     Route: 065
  2. HALDOL [Suspect]
     Indication: SCHIZOPHRENIA, PARANOID TYPE
     Route: 065
  3. HALDOL [Suspect]
     Route: 065
  4. RISPERIDONE [Suspect]
     Indication: SCHIZOPHRENIA, PARANOID TYPE
     Route: 065

REACTIONS (5)
  - SKIN DISCOLOURATION [None]
  - HALLUCINATION [None]
  - CEREBROVASCULAR ACCIDENT [None]
  - VARICOSE VEIN [None]
  - OEDEMA PERIPHERAL [None]
